FAERS Safety Report 6100823-7 (Version None)
Quarter: 2009Q1

REPORT INFORMATION
  Report Type: 
  Country: None (occurrence: None)
  Receive Date: 20090303
  Receipt Date: 20090227
  Transmission Date: 20090719
  Serious: Yes (Hospitalization)
  Sender: FDA-Public Use
  Company Number: US-GENENTECH-276637

PATIENT
  Sex: Female
  Weight: 71.9 kg

DRUGS (8)
  1. BEVACIZUMAB [Suspect]
     Indication: NON-SMALL CELL LUNG CANCER
     Dosage: 1138.5 MG, Q3W
     Route: 042
     Dates: start: 20080723
  2. ERLOTINIB [Suspect]
     Indication: NON-SMALL CELL LUNG CANCER
     Dosage: 150 MG, QD
     Route: 048
     Dates: start: 20080723
  3. FENTANYL TRANSDERMAL SYSTEM [Concomitant]
     Indication: PAIN
     Dosage: 25 A?G, Q3D
     Dates: start: 20080707
  4. METROGEL [Concomitant]
     Indication: RASH
     Dosage: 1 %, UNK
     Route: 061
     Dates: start: 20080729
  5. MINOCYCLINE [Concomitant]
     Indication: RASH
     Dosage: 100 MG, BID
     Dates: start: 20080902
  6. LORTAB [Concomitant]
     Indication: PAIN
     Dosage: UNK
     Dates: start: 20080925
  7. ATENOLOL [Concomitant]
     Indication: HYPERTENSION
     Dosage: 50 MG, QD
     Dates: start: 20080123
  8. NITROFURANTOIN [Concomitant]
     Indication: URINARY TRACT INFECTION
     Dosage: 100 MG, BID
     Dates: start: 20081110

REACTIONS (1)
  - PANCREATITIS [None]
